FAERS Safety Report 8862796 (Version 1)
Quarter: 2012Q4

REPORT INFORMATION
  Report Type: 
  Country: ZA (occurrence: ZA)
  Receive Date: 20121026
  Receipt Date: 20121026
  Transmission Date: 20130627
  Serious: Yes (Other)
  Sender: FDA-Public Use
  Company Number: ZA-JNJFOC-20121010148

PATIENT
  Sex: Male
  Weight: 64 kg

DRUGS (1)
  1. NICORETTE [Suspect]
     Indication: EX-TOBACCO USER
     Route: 002
     Dates: start: 201012, end: 201012

REACTIONS (3)
  - Blindness transient [Recovered/Resolved]
  - Dry mouth [Recovered/Resolved]
  - Head discomfort [Recovered/Resolved]
